FAERS Safety Report 8816074 (Version 3)
Quarter: 2012Q4

REPORT INFORMATION
  Report Type: 
  Country: JP (occurrence: JP)
  Receive Date: 20120928
  Receipt Date: 20121227
  Transmission Date: 20130627
  Serious: Yes (Other)
  Sender: FDA-Public Use
  Company Number: JP-PFIZER INC-2012239455

PATIENT
  Age: 50 Year
  Sex: Male

DRUGS (2)
  1. GABAPEN [Suspect]
     Dosage: 200 mg, 1x/day
     Route: 048
  2. DEPAKENE [Suspect]
     Dosage: UNK
     Route: 048

REACTIONS (1)
  - Epilepsy [Unknown]
